FAERS Safety Report 4310363-3 (Version None)
Quarter: 2004Q1

REPORT INFORMATION
  Report Type: 
  Country: None (occurrence: None)
  Receive Date: 20040302
  Receipt Date: 20040211
  Transmission Date: 20041129
  Serious: Yes (Life-Threatening)
  Sender: FDA-Public Use
  Company Number: A01200400678

PATIENT
  Age: 65 Year
  Sex: Male

DRUGS (3)
  1. ALFUZOSIN [Suspect]
     Indication: BENIGN PROSTATIC HYPERPLASIA
     Dosage: 10 MG QD
     Route: 048
     Dates: start: 20030522, end: 20040121
  2. THYRAX (LEVOTHYROXINE) [Concomitant]
  3. AVODART (DUTASTERIDE) [Concomitant]

REACTIONS (1)
  - SLEEP ATTACKS [None]
